FAERS Safety Report 4644733-0 (Version None)
Quarter: 2005Q2

REPORT INFORMATION
  Report Type: 
  Country: None (occurrence: None)
  Receive Date: 20050422
  Receipt Date: 20050407
  Transmission Date: 20051028
  Serious: Yes (Other)
  Sender: FDA-Public Use
  Company Number: 2005BI007222

PATIENT
  Age: 54 Year
  Sex: Female
  Weight: 49.4421 kg

DRUGS (3)
  1. AVONEX [Suspect]
     Indication: MULTIPLE SCLEROSIS
     Dosage: 30 UG; QW; IM
     Route: 030
     Dates: start: 20030301, end: 20030801
  2. AVONEX [Suspect]
     Indication: MULTIPLE SCLEROSIS
     Dosage: 30 UG; QW; IM
     Route: 030
     Dates: start: 20030801
  3. PREMARIN [Concomitant]

REACTIONS (3)
  - BREAST CANCER FEMALE [None]
  - DIARRHOEA [None]
  - INFLUENZA LIKE ILLNESS [None]
